FAERS Safety Report 18413465 (Version 1)
Quarter: 2020Q4

REPORT INFORMATION
  Report Type: Other
  Country: CA (occurrence: CA)
  Receive Date: 20201021
  Receipt Date: 20201021
  Transmission Date: 20210114
  Serious: Yes (Hospitalization, Other)
  Sender: FDA-Public Use
  Company Number: CA-ROCHE-2656599

PATIENT
  Sex: Female

DRUGS (8)
  1. RITUXAN [Suspect]
     Active Substance: RITUXIMAB
     Indication: PROGRESSIVE MULTIPLE SCLEROSIS
     Dosage: RECEIVED OUTSIDE OF RPAP IN THE UNITED STATES. HAS BEEN HAVING INFUSIONS FOR 6 YEARS (NO START DATE
     Route: 042
     Dates: end: 20191101
  2. TYLENOL [Concomitant]
     Active Substance: ACETAMINOPHEN
     Indication: PREMEDICATION
     Route: 048
     Dates: start: 20200729
  3. BACTRIM [Suspect]
     Active Substance: SULFAMETHOXAZOLE\TRIMETHOPRIM
     Indication: PRODUCT USED FOR UNKNOWN INDICATION
     Route: 065
  4. SOLU-MEDROL [Concomitant]
     Active Substance: METHYLPREDNISOLONE SODIUM SUCCINATE
     Indication: PREMEDICATION
     Route: 042
     Dates: start: 20200729
  5. RITUXAN [Suspect]
     Active Substance: RITUXIMAB
     Route: 042
  6. BENADRYL [Concomitant]
     Active Substance: DIPHENHYDRAMINE HYDROCHLORIDE
     Indication: PREMEDICATION
     Route: 048
     Dates: start: 20200729
  7. FAMPYRA [Concomitant]
     Active Substance: DALFAMPRIDINE
  8. RITUXAN [Suspect]
     Active Substance: RITUXIMAB
     Dosage: ONGOING
     Route: 042
     Dates: start: 20200729

REACTIONS (11)
  - Hip fracture [Unknown]
  - Suture insertion [Unknown]
  - Vertigo [Unknown]
  - Malaise [Unknown]
  - Off label use [Unknown]
  - Intentional product use issue [Unknown]
  - Nausea [Unknown]
  - Pain [Unknown]
  - Fall [Unknown]
  - Neuropathy peripheral [Unknown]
  - Drug hypersensitivity [Unknown]
